FAERS Safety Report 14164584 (Version 1)
Quarter: 2017Q4

REPORT INFORMATION
  Report Type: Spontaneous
  Country: US (occurrence: US)
  Receive Date: 20171107
  Receipt Date: 20171107
  Transmission Date: 20180321
  Serious: No
  Sender: FDA-Public Use
  Company Number: US-PFIZER INC-2017475763

PATIENT
  Sex: Male

DRUGS (1)
  1. LYRICA [Suspect]
     Active Substance: PREGABALIN
     Dosage: 75MG 2 TAB A DAY

REACTIONS (4)
  - Limb discomfort [Unknown]
  - Dizziness [Unknown]
  - Pain in extremity [Unknown]
  - Feeling abnormal [Unknown]
